FAERS Safety Report 8310639-9 (Version None)
Quarter: 2012Q2

REPORT INFORMATION
  Report Type: 
  Country: None (occurrence: None)
  Receive Date: 20120425
  Receipt Date: 20120417
  Transmission Date: 20120825
  Serious: Yes (Hospitalization, Other)
  Sender: FDA-Public Use
  Company Number: US-ASTRAZENECA-2012SE25201

PATIENT
  Age: 56 Year
  Sex: Male
  Weight: 80 kg

DRUGS (2)
  1. CRESTOR [Suspect]
     Indication: BLOOD CHOLESTEROL INCREASED
     Route: 048
     Dates: start: 20110801
  2. CRESTOR [Suspect]
     Route: 048
     Dates: start: 20120401

REACTIONS (4)
  - MYOCARDIAL ISCHAEMIA [None]
  - CORONARY ARTERY OCCLUSION [None]
  - VENOUS OCCLUSION [None]
  - INTENTIONAL DRUG MISUSE [None]
